FAERS Safety Report 14628820 (Version 1)
Quarter: 2018Q1

REPORT INFORMATION
  Report Type: Spontaneous
  Country: GB (occurrence: GB)
  Receive Date: 20180313
  Receipt Date: 20180313
  Transmission Date: 20180509
  Serious: Yes (Other)
  Sender: FDA-Public Use
  Company Number: GB-SUN PHARMACEUTICAL INDUSTRIES LTD-2018R1-165833

PATIENT
  Age: 25 Year
  Sex: Female
  Weight: 76.2 kg

DRUGS (1)
  1. FLUOXETINE [Suspect]
     Active Substance: FLUOXETINE HYDROCHLORIDE
     Indication: DEPRESSION
     Dosage: 30
     Route: 048
     Dates: start: 20120501

REACTIONS (7)
  - Confabulation [Not Recovered/Not Resolved]
  - Amnesia [Not Recovered/Not Resolved]
  - Personality change [Unknown]
  - Abnormal weight gain [Not Recovered/Not Resolved]
  - Amenorrhoea [Not Recovered/Not Resolved]
  - Aphasia [Not Recovered/Not Resolved]
  - Frontotemporal dementia [Not Recovered/Not Resolved]

NARRATIVE: CASE EVENT DATE: 20130301
